FAERS Safety Report 5688210-7 (Version None)
Quarter: 2008Q1

REPORT INFORMATION
  Report Type: 
  Country: None (occurrence: None)
  Receive Date: 20080327
  Receipt Date: 20080326
  Transmission Date: 20080703
  Serious: Yes (Other)
  Sender: FDA-Public Use
  Company Number: 2008SP001810

PATIENT
  Age: 53 Year
  Sex: Male
  Weight: 69 kg

DRUGS (4)
  1. PEG-INTRON [Suspect]
     Indication: HEPATITIS C
     Dosage: 100 MCG;QW;SC
     Route: 058
     Dates: start: 20070210, end: 20071215
  2. REBETOL [Suspect]
     Indication: HEPATITIS C
     Dosage: 800 MG;QD;PO
     Route: 048
     Dates: start: 20070210, end: 20071222
  3. CLARITIN [Concomitant]
  4. ALLELOCK [Concomitant]

REACTIONS (4)
  - INJECTION SITE CELLULITIS [None]
  - INJECTION SITE NECROSIS [None]
  - INJECTION SITE ULCER [None]
  - PRURITUS GENERALISED [None]
